FAERS Safety Report 9004719 (Version 1)
Quarter: 2013Q1

REPORT INFORMATION
  Report Type: Spontaneous
  Country: CN (occurrence: CN)
  Receive Date: 20130109
  Receipt Date: 20130109
  Transmission Date: 20140127
  Serious: Yes (Other)
  Sender: FDA-Public Use
  Company Number: CN-BAYER-2013-001646

PATIENT
  Age: 88 Year
  Sex: Male
  Weight: 76 kg

DRUGS (1)
  1. AVELOX [Suspect]
     Indication: ANTIBIOTIC THERAPY
     Dosage: 250 ML, QD
     Route: 041
     Dates: start: 20100828, end: 20100828

REACTIONS (1)
  - Delirium [Recovered/Resolved]
